FAERS Safety Report 10009440 (Version 2)
Quarter: 2014Q1

REPORT INFORMATION
  Report Type: Spontaneous
  Country: US (occurrence: US)
  Receive Date: 20140313
  Receipt Date: 20140313
  Transmission Date: 20141002
  Serious: No
  Sender: FDA-Public Use
  Company Number: US-INCYTE CORPORATION-2012IN001313

PATIENT
  Sex: Male
  Weight: 92.06 kg

DRUGS (16)
  1. JAKAFI [Suspect]
     Indication: MYELOFIBROSIS
     Dosage: 5 MG, BID
     Route: 048
     Dates: start: 20120101, end: 20120822
  2. TRAMADOL [Concomitant]
  3. XANAX [Concomitant]
  4. ZETIA [Concomitant]
  5. ASPIRIN [Concomitant]
     Dosage: 81 MG, UNK
  6. TACTINAL [Concomitant]
  7. MIRALAX [Concomitant]
  8. NTG [Concomitant]
  9. VITAMIN D [Concomitant]
  10. OMEGA 3 [Concomitant]
  11. AFRIN [Concomitant]
  12. MICARDIS [Concomitant]
  13. DEXLANSOPRAZOLE/DEXILANT [Concomitant]
  14. VITAMIN B12 [Concomitant]
  15. FLONASE [Concomitant]
  16. ZYRTEC [Concomitant]

REACTIONS (1)
  - Abdominal distension [Unknown]
